FAERS Safety Report 10363364 (Version 1)
Quarter: 2014Q3

REPORT INFORMATION
  Report Type: Report from Study
  Country: AU (occurrence: AU)
  Receive Date: 20140805
  Receipt Date: 20140805
  Transmission Date: 20150326
  Serious: Yes (Death, Hospitalization, Other)
  Sender: FDA-Public Use
  Company Number: AU-INCYTE CORPORATION-2014IN002108

PATIENT
  Age: 83 Year
  Sex: Female

DRUGS (1)
  1. JAKAFI [Suspect]
     Active Substance: RUXOLITINIB
     Indication: MYELOFIBROSIS
     Dosage: 20 MG
     Route: 048
     Dates: start: 20140606

REACTIONS (5)
  - Embolic stroke [Not Recovered/Not Resolved]
  - Cardiac disorder [Unknown]
  - Death [Fatal]
  - Dehydration [Unknown]
  - Platelet count increased [Not Recovered/Not Resolved]

NARRATIVE: CASE EVENT DATE: 20140719
